FAERS Safety Report 4668069-7 (Version None)
Quarter: 2005Q2

REPORT INFORMATION
  Report Type: 
  Country: None (occurrence: None)
  Receive Date: 20050520
  Receipt Date: 20050104
  Transmission Date: 20051028
  Serious: Yes (Death, Hospitalization)
  Sender: FDA-Public Use
  Company Number: US-MERCK-0501USA00359

PATIENT
  Age: 51 Year
  Sex: Male

DRUGS (17)
  1. VIOXX [Suspect]
     Route: 048
     Dates: start: 20001025, end: 20021216
  2. VIOXX [Suspect]
     Route: 048
  3. ORPHENADRINE [Concomitant]
     Route: 065
  4. FUROSEMIDE [Concomitant]
     Indication: HYPERTENSION
     Route: 065
  5. ISOSORBIDE [Concomitant]
     Indication: ANGINA PECTORIS
     Route: 065
  6. ISOSORBIDE [Concomitant]
     Route: 065
  7. LORAZEPAM [Concomitant]
     Route: 065
  8. LORAZEPAM [Concomitant]
     Route: 048
  9. NITROQUICK [Concomitant]
     Route: 065
  10. LANOXIN [Concomitant]
     Route: 065
  11. SPIRONOLACTONE [Concomitant]
     Route: 065
  12. LIPITOR [Concomitant]
     Route: 065
  13. [THERAPY UNSPECIFIED] [Concomitant]
     Route: 065
  14. UNIPHYL [Concomitant]
     Indication: CHRONIC OBSTRUCTIVE PULMONARY DISEASE
     Route: 048
  15. UNIPHYL [Concomitant]
     Route: 048
  16. UNIPHYL [Concomitant]
     Indication: ASTHMA
     Route: 048
  17. UNIPHYL [Concomitant]
     Route: 048

REACTIONS (7)
  - ARTERIAL OCCLUSIVE DISEASE [None]
  - CARDIOVASCULAR DISORDER [None]
  - CHEST PAIN [None]
  - CORONARY ARTERY DISEASE [None]
  - DYSPNOEA [None]
  - MYOCARDIAL INFARCTION [None]
  - OEDEMA PERIPHERAL [None]
